FAERS Safety Report 12010299 (Version 1)
Quarter: 2016Q1

REPORT INFORMATION
  Report Type: Spontaneous
  Country: None (occurrence: None)
  Receive Date: 20160204
  Receipt Date: 20160204
  Transmission Date: 20160526
  Serious: No
  Sender: FDA-Public Use
  Company Number: None

PATIENT

DRUGS (4)
  1. NOVOLIN [Suspect]
     Active Substance: INSULIN HUMAN
  2. CITALOPRAM [Suspect]
     Active Substance: CITALOPRAM HYDROBROMIDE
  3. METOPROLOL. [Suspect]
     Active Substance: METOPROLOL
  4. LISINOPRIL. [Suspect]
     Active Substance: LISINOPRIL

REACTIONS (14)
  - Onychomadesis [None]
  - Libido decreased [None]
  - Pain [None]
  - Thirst [None]
  - Depression [None]
  - Alopecia [None]
  - Bone pain [None]
  - Onychomycosis [None]
  - Nervousness [None]
  - Dry skin [None]
  - Burning sensation [None]
  - Gait disturbance [None]
  - Blood glucose increased [None]
  - Blood glucose decreased [None]
